FAERS Safety Report 5531193-0 (Version None)
Quarter: 2007Q4

REPORT INFORMATION
  Report Type: 
  Country: None (occurrence: None)
  Receive Date: 20071130
  Receipt Date: 20071129
  Transmission Date: 20080405
  Serious: Yes (Hospitalization)
  Sender: FDA-Public Use
  Company Number: CH-PFIZER INC-2007099740

PATIENT
  Age: 78 Year
  Sex: Female
  Weight: 55 kg

DRUGS (9)
  1. CELEBREX [Suspect]
     Indication: OSTEOARTHRITIS
     Route: 048
     Dates: start: 20071012, end: 20071013
  2. HALDOL [Concomitant]
     Indication: DELIRIUM
     Dosage: DAILY DOSE:1.5MG
     Route: 048
     Dates: start: 20061001, end: 20071013
  3. SEROQUEL [Concomitant]
     Indication: DELIRIUM
     Dosage: DAILY DOSE:100MG
     Route: 048
     Dates: start: 20061001, end: 20071013
  4. EXELON [Concomitant]
     Indication: DELIRIUM
     Dosage: DAILY DOSE:6MG
     Route: 048
     Dates: start: 20061001, end: 20071013
  5. GLUTRIL [Concomitant]
     Indication: TYPE 2 DIABETES MELLITUS
     Dosage: DAILY DOSE:37.5MG
     Route: 048
     Dates: start: 19970101, end: 20071013
  6. IMOVANE [Concomitant]
     Route: 048
  7. PANZYTRAT [Concomitant]
     Indication: PANCREATIC DISORDER
     Route: 048
  8. PANTOPRAZOLE SODIUM [Concomitant]
     Dosage: DAILY DOSE:20MG
     Route: 048
  9. DAFALGAN [Concomitant]
     Dosage: DAILY DOSE:1500MG
     Route: 048

REACTIONS (4)
  - AGGRESSION [None]
  - CONFUSIONAL STATE [None]
  - DELIRIUM [None]
  - HALLUCINATION [None]
